FAERS Safety Report 6184596-8 (Version None)
Quarter: 2009Q2

REPORT INFORMATION
  Report Type: 
  Country: None (occurrence: None)
  Receive Date: 20090508
  Receipt Date: 20090505
  Transmission Date: 20091009
  Serious: Yes (Death, Other)
  Sender: FDA-Public Use
  Company Number: PHHY2009ES17012

PATIENT
  Age: 16 Year

DRUGS (8)
  1. CYCLOSPORINE [Suspect]
     Indication: RENAL TRANSPLANT
  2. AZATHIOPRINE [Suspect]
     Indication: RENAL TRANSPLANT
  3. CYCLOPHOSPHAMIDE [Concomitant]
  4. VINCRISTINE [Concomitant]
  5. PREDNISONE [Concomitant]
  6. DOXORUBICIN HCL [Concomitant]
     Dosage: 240 MG/M^2
  7. METHOTREXATE [Concomitant]
     Dosage: 9 G/M^2
  8. CYTARABINE [Concomitant]

REACTIONS (4)
  - BURKITT'S LYMPHOMA [None]
  - EPSTEIN-BARR VIRUS ASSOCIATED LYMPHOPROLIFERATIVE DISORDER [None]
  - FEBRILE NEUTROPENIA [None]
  - SEPTIC SHOCK [None]
